FAERS Safety Report 7225435-3 (Version None)
Quarter: 2011Q1

REPORT INFORMATION
  Report Type: 
  Country: None (occurrence: None)
  Receive Date: 20110113
  Receipt Date: 20101021
  Transmission Date: 20110831
  Serious: Yes (Hospitalization)
  Sender: FDA-Public Use
  Company Number: US-NOVEN-10US001399

PATIENT
  Sex: Female
  Weight: 50.794 kg

DRUGS (2)
  1. UNKNOWN [Concomitant]
  2. FENTANYL-100 [Suspect]
     Indication: PAIN
     Dosage: 50 UG/HR, EVERY 72 HOURS
     Route: 062
     Dates: start: 20100701

REACTIONS (4)
  - INADEQUATE ANALGESIA [None]
  - WEIGHT DECREASED [None]
  - DYSPNOEA [None]
  - PRODUCT QUALITY ISSUE [None]
